FAERS Safety Report 16223758 (Version 1)
Quarter: 2019Q2

REPORT INFORMATION
  Report Type: Spontaneous
  Country: US (occurrence: US)
  Receive Date: 20190422
  Receipt Date: 20190422
  Transmission Date: 20190711
  Serious: Yes (Hospitalization, Other)
  Sender: FDA-Public Use
  Company Number: US-PFIZER INC-2019169027

PATIENT
  Age: 35 Year
  Sex: Male
  Weight: 99.79 kg

DRUGS (7)
  1. OXYCODONE [Concomitant]
     Active Substance: OXYCODONE
     Indication: NEPHROLITHIASIS
     Dosage: 15 MG, 4X/DAY
  2. LYRICA [Suspect]
     Active Substance: PREGABALIN
     Indication: NERVE INJURY
     Dosage: 300 MG TWICE A DAY
     Dates: start: 20180927
  3. LISINOPRIL AND HYDROCHLOROTHIAZIDE [Concomitant]
     Active Substance: HYDROCHLOROTHIAZIDE\LISINOPRIL
     Indication: BLOOD PRESSURE ABNORMAL
     Dosage: 1 DF, 1X/DAY
  4. LYRICA [Suspect]
     Active Substance: PREGABALIN
     Dosage: 150 MG TWICE A DAY
  5. LISINOPRIL AND HYDROCHLOROTHIAZIDE [Concomitant]
     Active Substance: HYDROCHLOROTHIAZIDE\LISINOPRIL
     Indication: NEPHROLITHIASIS
  6. CELEBREX [Concomitant]
     Active Substance: CELECOXIB
     Indication: INFLAMMATION
     Dosage: 100 MG, 2X/DAY
  7. OXYCODONE [Concomitant]
     Active Substance: OXYCODONE
     Indication: BACK DISORDER

REACTIONS (5)
  - Loss of consciousness [Unknown]
  - Product prescribing error [Unknown]
  - Heat stroke [Unknown]
  - Headache [Not Recovered/Not Resolved]
  - Joint dislocation [Unknown]

NARRATIVE: CASE EVENT DATE: 20180927
